FAERS Safety Report 11212047 (Version 3)
Quarter: 2015Q3

REPORT INFORMATION
  Report Type: Spontaneous
  Country: FR (occurrence: FR)
  Receive Date: 20150623
  Receipt Date: 20150706
  Transmission Date: 20151125
  Serious: Yes (Hospitalization, Other)
  Sender: FDA-Public Use
  Company Number: FR-PFIZER INC-2015202153

PATIENT
  Age: 86 Year
  Sex: Female

DRUGS (13)
  1. CARDENSIEL [Concomitant]
     Active Substance: BISOPROLOL FUMARATE
     Indication: HYPERTENSION
     Dosage: 2.5 MG, 1X/DAY
     Route: 048
  2. LANTUS [Concomitant]
     Active Substance: INSULIN GLARGINE
     Indication: DIABETES MELLITUS
     Dosage: UNK
     Route: 058
  3. IXPRIM [Suspect]
     Active Substance: ACETAMINOPHEN\TRAMADOL HYDROCHLORIDE
     Dosage: DOSE REDUCED
     Dates: start: 20150311
  4. IXPRIM [Suspect]
     Active Substance: ACETAMINOPHEN\TRAMADOL HYDROCHLORIDE
     Dosage: UNK
     Route: 048
  5. REPAGLINIDE. [Concomitant]
     Active Substance: REPAGLINIDE
     Indication: DIABETES MELLITUS
     Dosage: 2 MG 6 TIMES DAILY
     Route: 048
  6. OGAST [Concomitant]
     Active Substance: LANSOPRAZOLE
     Dosage: 30 MG, UNK
  7. PREVISCAN [Concomitant]
     Active Substance: FLUINDIONE
     Dosage: ALTERNATING 0.75 DF DAILY AND 1 DF DAILY EVERY OTHER DAY
  8. LASILIX [Suspect]
     Active Substance: FUROSEMIDE
     Dosage: 20 MG, 1X/DAY
     Dates: end: 20150311
  9. COVERSY [Suspect]
     Active Substance: PERINDOPRIL
     Indication: HYPERTENSION
     Dosage: 2.5 MG, 1X/DAY
     Route: 048
     Dates: end: 20150311
  10. CYMBALTA [Suspect]
     Active Substance: DULOXETINE HYDROCHLORIDE
     Dosage: 60 MG, 1X/DAY
     Route: 048
     Dates: end: 20150311
  11. LEVOTHYROX [Concomitant]
     Active Substance: LEVOTHYROXINE
     Indication: HYPERTHYROIDISM
     Dosage: 25 ?G, 1X/DAY
     Route: 048
     Dates: end: 20150311
  12. ZOLPIDEM [Suspect]
     Active Substance: ZOLPIDEM\ZOLPIDEM TARTRATE
     Dosage: UNK
     Route: 048
     Dates: end: 20150311
  13. LYRICA [Suspect]
     Active Substance: PREGABALIN
     Dosage: 75 MG, DAILY (50 MG AT NOON, 25 MG IN THE EVENING)
     Route: 048
     Dates: end: 20150311

REACTIONS (11)
  - Atrial fibrillation [Unknown]
  - Disorientation [Unknown]
  - Globulins increased [Unknown]
  - Confusional state [Recovered/Resolved]
  - Memory impairment [Unknown]
  - Arthralgia [Unknown]
  - Fall [Recovered/Resolved]
  - Cognitive disorder [Unknown]
  - International normalised ratio increased [Recovered/Resolved]
  - Psychomotor retardation [Unknown]
  - Bone pain [Unknown]

NARRATIVE: CASE EVENT DATE: 201503
